FAERS Safety Report 4284797-X (Version None)
Quarter: 2004Q1

REPORT INFORMATION
  Report Type: 
  Country: None (occurrence: None)
  Receive Date: 20040202
  Receipt Date: 20040121
  Transmission Date: 20041129
  Serious: Yes (Hospitalization)
  Sender: FDA-Public Use
  Company Number: 00P-129-0176965-00

PATIENT
  Age: 19 Year
  Sex: Female

DRUGS (1)
  1. MERIDIA [Suspect]
     Indication: OBESITY
     Dosage: 10 MG,  1 IN 1 D, PER ORAL
     Route: 048

REACTIONS (10)
  - ABDOMINAL PAIN [None]
  - ANOREXIA [None]
  - ANXIETY [None]
  - BLOOD PRESSURE INCREASED [None]
  - CONSTIPATION [None]
  - DELUSION [None]
  - HALLUCINATION, AUDITORY [None]
  - MENTAL IMPAIRMENT [None]
  - PARANOIA [None]
  - SLEEP DISORDER [None]
